FAERS Safety Report 10898307 (Version 1)
Quarter: 2015Q1

REPORT INFORMATION
  Report Type: Spontaneous
  Country: None (occurrence: None)
  Receive Date: 20150302
  Receipt Date: 20150302
  Transmission Date: 20150721
  Serious: Yes (Disabling)
  Sender: FDA-Public Use
  Company Number: None

PATIENT

DRUGS (1)
  1. RISPERDAL CONSTA [Suspect]
     Active Substance: RISPERIDONE

REACTIONS (7)
  - Gait disturbance [None]
  - Lethargy [None]
  - Erectile dysfunction [None]
  - Feeling abnormal [None]
  - Anhedonia [None]
  - Feeling of despair [None]
  - Decreased interest [None]
